FAERS Safety Report 24375828 (Version 1)
Quarter: 2024Q3

REPORT INFORMATION
  Report Type: Spontaneous
  Country: US (occurrence: US)
  Receive Date: 20240928
  Receipt Date: 20240928
  Transmission Date: 20241017
  Serious: Yes (Hospitalization)
  Sender: AMGEN
  Company Number: US-AMGEN-USASP2024190431

PATIENT
  Age: 25 Year
  Sex: Male

DRUGS (1)
  1. PREDNISONE [Suspect]
     Active Substance: PREDNISONE
     Indication: Pneumonia
     Dosage: UNK, TAPER
     Route: 065

REACTIONS (3)
  - Lupus nephritis [Unknown]
  - Viral infection [Unknown]
  - Bacterial infection [Unknown]
